FAERS Safety Report 10239970 (Version 2)
Quarter: 2014Q2

REPORT INFORMATION
  Report Type: Spontaneous
  Country: GB (occurrence: GB)
  Receive Date: 20140616
  Receipt Date: 20140616
  Transmission Date: 20141212
  Serious: Yes (Other)
  Sender: FDA-Public Use
  Company Number: GB-009507513-1406GBR007001

PATIENT
  Age: 1 Day
  Sex: 0

DRUGS (4)
  1. NEXPLANON [Suspect]
     Dosage: UNK
     Route: 064
     Dates: start: 20130610
  2. BETAMETHASONE SODIUM PHOSPHATE [Concomitant]
     Indication: MATERNAL THERAPY TO ENHANCE FOETAL LUNG MATURITY
     Dosage: 12 MG, 2 DOSE
     Route: 064
  3. LAXIDO [Concomitant]
     Indication: CONSTIPATION
     Route: 064
  4. FOLIC ACID [Concomitant]
     Route: 064

REACTIONS (2)
  - Premature baby [Unknown]
  - Foetal exposure during pregnancy [Recovered/Resolved]
